FAERS Safety Report 12750138 (Version 2)
Quarter: 2017Q2

REPORT INFORMATION
  Report Type: Spontaneous
  Country: EG (occurrence: EG)
  Receive Date: 20160916
  Receipt Date: 20170502
  Transmission Date: 20170830
  Serious: Yes (Hospitalization)
  Sender: FDA-Public Use
  Company Number: EG-SA-2016SA168934

PATIENT
  Age: 47 Year
  Sex: Female
  Weight: 112 kg

DRUGS (4)
  1. TRITACE [Suspect]
     Active Substance: RAMIPRIL
     Indication: HYPERTENSION
     Route: 048
     Dates: start: 2014
  2. ASPIRIN. [Concomitant]
     Active Substance: ASPIRIN
     Indication: PLATELET AGGREGATION
     Dosage: STRENGTH: 100 MG
     Route: 048
     Dates: start: 2014
  3. PREGALEX [Concomitant]
     Indication: NEUROPATHY PERIPHERAL
     Dosage: STRENGTH: 150 MG
     Route: 048
     Dates: start: 201605
  4. ATORVASTATIN [Concomitant]
     Active Substance: ATORVASTATIN
     Dosage: STRENGTH: 40 MG
     Route: 048
     Dates: start: 2015

REACTIONS (4)
  - Hyperglycaemia [Recovered/Resolved]
  - Confusional state [Recovered/Resolved]
  - Tongue dry [Recovered/Resolved]
  - Abasia [Recovered/Resolved]

NARRATIVE: CASE EVENT DATE: 20160707
